FAERS Safety Report 11830240 (Version 3)
Quarter: 2015Q4

REPORT INFORMATION
  Report Type: Spontaneous
  Country: US (occurrence: US)
  Receive Date: 20151214
  Receipt Date: 20151214
  Transmission Date: 20160305
  Serious: Yes (Life-Threatening, Hospitalization, Disabling, Other)
  Sender: FDA-Public Use
  Company Number: US-JNJFOC-20151107707

PATIENT
  Sex: Female
  Weight: 72.58 kg

DRUGS (2)
  1. LEVAQUIN [Suspect]
     Active Substance: LEVOFLOXACIN
     Indication: BRONCHITIS
     Route: 065
     Dates: start: 19980219, end: 19980220
  2. LEVAQUIN [Suspect]
     Active Substance: LEVOFLOXACIN
     Indication: SINUSITIS
     Route: 065
     Dates: start: 19980219, end: 19980220

REACTIONS (5)
  - Neuropathy peripheral [Not Recovered/Not Resolved]
  - Emotional disorder [Unknown]
  - Burning sensation [Unknown]
  - Eye irritation [Unknown]
  - Insomnia [Unknown]

NARRATIVE: CASE EVENT DATE: 19980219
